FAERS Safety Report 5671238-0 (Version None)
Quarter: 2008Q1

REPORT INFORMATION
  Report Type: 
  Country: None (occurrence: None)
  Receive Date: 20080318
  Receipt Date: 20080313
  Transmission Date: 20080703
  Serious: Yes (Death, Hospitalization, Disabling)
  Sender: FDA-Public Use
  Company Number: GB-SANOFI-SYNTHELABO-D01200801744

PATIENT
  Sex: Female
  Weight: 36.8 kg

DRUGS (12)
  1. DIAZEPAM [Concomitant]
     Dates: start: 20071001
  2. ANTIBIOTICS [Concomitant]
     Dates: start: 20080101, end: 20080101
  3. CO-CODAMOL [Concomitant]
     Dates: start: 20070701
  4. LACTULOSE [Concomitant]
     Dates: start: 20070701
  5. PARACETAMOL [Concomitant]
     Dates: start: 20070701
  6. GRANISETRON [Concomitant]
     Dates: start: 20071119, end: 20080128
  7. DOMPERIDONE [Concomitant]
     Dates: start: 20071119, end: 20080218
  8. DEXAMETHASONE TAB [Concomitant]
     Dates: start: 20071119, end: 20080218
  9. LEUCOVORIN CALCIUM [Suspect]
     Route: 042
     Dates: start: 20080128, end: 20080129
  10. FLUOROURACIL [Suspect]
     Dosage: 400 MG/M?, IV BOLUS D1+D2 FOLLOWED BY 5-FU 2400 MG/M? OVER 46-HOUR CONTINUOUS INFUSION.
     Route: 042
     Dates: start: 20080128, end: 20080129
  11. OXALIPLATIN [Suspect]
     Route: 042
     Dates: start: 20080128, end: 20080128
  12. SR57746 OR PLACEBO [Suspect]
     Route: 048
     Dates: start: 20071119, end: 20080218

REACTIONS (3)
  - ANAEMIA [None]
  - INTESTINAL PERFORATION [None]
  - LETHARGY [None]
